FAERS Safety Report 9916624 (Version 2)
Quarter: 2014Q1

REPORT INFORMATION
  Report Type: Spontaneous
  Country: DE (occurrence: None)
  Receive Date: 20140219
  Receipt Date: 20140220
  Transmission Date: 20141002
  Serious: Yes (Other)
  Sender: FDA-Public Use
  Company Number: AUR-APL-2014-01542

PATIENT
  Age: 61 Year
  Sex: Male
  Weight: 75 kg

DRUGS (5)
  1. SIMVASTATIN (SIMVASTATIN) [Suspect]
     Indication: HYPERLIPIDAEMIA
     Route: 048
     Dates: start: 20131024, end: 20131120
  2. HYDROCHLOROTHIAZIDE W/RAMIPRIL (SALUTEC) [Concomitant]
  3. AMLODIPINE (AMLODIPINE) [Concomitant]
  4. METOHEXAL (METOPROLOL TARTRATE) [Concomitant]
  5. METFORMIN (METFORMIN) [Concomitant]

REACTIONS (2)
  - Blood pressure increased [None]
  - Condition aggravated [None]
